FAERS Safety Report 25261314 (Version 1)
Quarter: 2025Q2

REPORT INFORMATION
  Report Type: Report from Study
  Country: US (occurrence: US)
  Receive Date: 20250501
  Receipt Date: 20250501
  Transmission Date: 20250716
  Serious: Yes (Other)
  Sender: ABBVIE
  Company Number: US-ABBVIE-5909214

PATIENT
  Age: 61 Year
  Sex: Female

DRUGS (2)
  1. SKYRIZI [Suspect]
     Active Substance: RISANKIZUMAB-RZAA
     Indication: Psoriatic arthropathy
     Route: 058
     Dates: start: 20241011
  2. SKYRIZI [Suspect]
     Active Substance: RISANKIZUMAB-RZAA
     Route: 058
     Dates: start: 20240103

REACTIONS (13)
  - Cholecystectomy [Unknown]
  - Fatigue [Unknown]
  - Myalgia [Unknown]
  - Skin discolouration [Not Recovered/Not Resolved]
  - Back pain [Not Recovered/Not Resolved]
  - COVID-19 [Recovered/Resolved]
  - Drug ineffective [Unknown]
  - Psoriatic arthropathy [Unknown]
  - Fall [Unknown]
  - Foot fracture [Unknown]
  - Immunodeficiency [Unknown]
  - Shoulder fracture [Unknown]
  - Influenza [Unknown]

NARRATIVE: CASE EVENT DATE: 20240701
